FAERS Safety Report 7908951-8 (Version None)
Quarter: 2011Q4

REPORT INFORMATION
  Report Type: 
  Country: None (occurrence: None)
  Receive Date: 20111110
  Receipt Date: 20111110
  Transmission Date: 20120403
  Serious: No
  Sender: FDA-Public Use
  Company Number: None

PATIENT
  Sex: Male
  Weight: 81.5 kg

DRUGS (1)
  1. INTRON A [Suspect]
     Dosage: 100 MILLIUNIT
     Dates: end: 20111109

REACTIONS (2)
  - METABOLIC FUNCTION TEST ABNORMAL [None]
  - FULL BLOOD COUNT ABNORMAL [None]
